FAERS Safety Report 9261029 (Version 1)
Quarter: 2013Q2

REPORT INFORMATION
  Report Type: Spontaneous
  Country: US (occurrence: US)
  Receive Date: 20130429
  Receipt Date: 20130429
  Transmission Date: 20140414
  Serious: No
  Sender: FDA-Public Use
  Company Number: US-AMGEN-USASP2012067266

PATIENT
  Age: 54 Year
  Sex: Male

DRUGS (1)
  1. SENSIPAR [Suspect]
     Indication: PRODUCT USED FOR UNKNOWN INDICATION
     Dosage: 30 MG, UNK
     Dates: start: 201204

REACTIONS (3)
  - Dyspnoea [Recovered/Resolved]
  - Blood phosphorus increased [Unknown]
  - Cardiac disorder [Unknown]
